FAERS Safety Report 21510206 (Version 1)
Quarter: 2022Q4

REPORT INFORMATION
  Report Type: Report from Study
  Country: US (occurrence: US)
  Receive Date: 20221026
  Receipt Date: 20221026
  Transmission Date: 20230113
  Serious: Yes (Other)
  Sender: FDA-Public Use
  Company Number: US-JAZZ-2021-US-005671

PATIENT
  Sex: Male

DRUGS (24)
  1. XYWAV [Suspect]
     Active Substance: CALCIUM OXYBATE\MAGNESIUM OXYBATE\POTASSIUM OXYBATE\SODIUM OXYBATE
     Indication: Narcolepsy
     Dosage: 2.25 GRAM, BID
     Route: 048
     Dates: start: 20210321, end: 2021
  2. XYWAV [Suspect]
     Active Substance: CALCIUM OXYBATE\MAGNESIUM OXYBATE\POTASSIUM OXYBATE\SODIUM OXYBATE
     Indication: Cataplexy
     Dosage: UNKNOWN HIGHER DOSE
     Route: 048
     Dates: start: 2021, end: 2021
  3. XYWAV [Suspect]
     Active Substance: CALCIUM OXYBATE\MAGNESIUM OXYBATE\POTASSIUM OXYBATE\SODIUM OXYBATE
     Indication: Somnolence
  4. METHADONE [Suspect]
     Active Substance: METHADONE HYDROCHLORIDE
     Indication: Restless legs syndrome
  5. GABAPENTIN [Concomitant]
     Active Substance: GABAPENTIN
     Dosage: 0000
     Route: 048
     Dates: start: 20220823
  6. AJOVY [Concomitant]
     Active Substance: FREMANEZUMAB-VFRM
     Dosage: 225MG/1.5ML
     Route: 058
     Dates: start: 20220807
  7. ATORVASTATIN [Concomitant]
     Active Substance: ATORVASTATIN
     Dosage: UNK, QD
     Route: 048
     Dates: start: 20220620
  8. CARBIDOPA\LEVODOPA [Concomitant]
     Active Substance: CARBIDOPA\LEVODOPA
     Dosage: 10MG-100MG
     Route: 048
     Dates: start: 20220722
  9. DECARA [COLECALCIFEROL] [Concomitant]
     Dosage: 0000
     Route: 048
     Dates: start: 20220712
  10. FISH OIL [Concomitant]
     Active Substance: FISH OIL
     Dosage: 0000
     Route: 048
     Dates: start: 20220205
  11. FUROSEMIDE [Concomitant]
     Active Substance: FUROSEMIDE
     Dosage: 0000
     Route: 048
     Dates: start: 20220827
  12. LEVOTHYROXINE [Concomitant]
     Active Substance: LEVOTHYROXINE
     Dosage: 0000
     Route: 048
     Dates: start: 20220515
  13. LINZESS [Concomitant]
     Active Substance: LINACLOTIDE
     Dosage: UNK
     Dates: start: 20220515
  14. LISINOPRIL [Concomitant]
     Active Substance: LISINOPRIL
     Dosage: 0000
     Route: 048
     Dates: start: 20220622
  15. METOPROLOL TARTRATE [Concomitant]
     Active Substance: METOPROLOL TARTRATE
     Dosage: 0000
     Route: 048
     Dates: start: 20220726
  16. MODAFINIL [Concomitant]
     Active Substance: MODAFINIL
     Dosage: UNK, QD
     Dates: start: 20220718
  17. MYRBETRIQ [Concomitant]
     Active Substance: MIRABEGRON
     Dosage: 0000
     Dates: start: 20220825
  18. NEUPRO [Concomitant]
     Active Substance: ROTIGOTINE
     Dosage: 2MG/24HR, 4MG/24HR
     Dates: start: 20220823
  19. NITROGLYCERIN [Concomitant]
     Active Substance: NITROGLYCERIN
     Dosage: UNK
     Route: 060
     Dates: start: 20220622
  20. RAMELTEON [Concomitant]
     Active Substance: RAMELTEON
     Dosage: UNK
     Route: 048
     Dates: start: 20220809
  21. RIZATRIPTAN [Concomitant]
     Active Substance: RIZATRIPTAN
     Dosage: UNK
     Route: 048
     Dates: start: 20220328
  22. TAMSULOSIN [Concomitant]
     Active Substance: TAMSULOSIN
     Dosage: 0000
     Route: 048
     Dates: start: 20220620
  23. TRAMADOL [Concomitant]
     Active Substance: TRAMADOL
     Dosage: UNK
     Dates: start: 20220217
  24. NITROSTAT [Concomitant]
     Active Substance: NITROGLYCERIN

REACTIONS (6)
  - Hallucination [Recovered/Resolved]
  - Somnambulism [Unknown]
  - Sedation [Unknown]
  - Restless legs syndrome [Unknown]
  - Condition aggravated [Unknown]
  - Gastrointestinal disorder [Unknown]

NARRATIVE: CASE EVENT DATE: 20210101
